FAERS Safety Report 8031623-9 (Version None)
Quarter: 2012Q1

REPORT INFORMATION
  Report Type: 
  Country: None (occurrence: None)
  Receive Date: 20120109
  Receipt Date: 20120104
  Transmission Date: 20120608
  Serious: Yes (Life-Threatening, Hospitalization)
  Sender: FDA-Public Use
  Company Number: GXKR2012DE000478

PATIENT

DRUGS (5)
  1. IBUPROFEN [Suspect]
     Indication: PHANTOM PAIN
     Dosage: 600 MG, UNK
     Route: 048
     Dates: start: 20110401, end: 20110701
  2. METAMIZOLE [Suspect]
     Indication: PHANTOM PAIN
     Dosage: 500 MG, UNK
     Route: 048
     Dates: start: 20110401, end: 20110701
  3. TRAMADOL HCL [Suspect]
     Indication: PHANTOM PAIN
     Dosage: 100 MG, UNK
     Route: 048
     Dates: start: 20110401, end: 20110701
  4. PREGABALIN [Suspect]
     Indication: PHANTOM PAIN
     Dosage: 300 MG, UNK
     Route: 048
     Dates: start: 20110401, end: 20110701
  5. AMOXICILLIN [Concomitant]
     Indication: PYREXIA
     Route: 048
     Dates: start: 20110701, end: 20110701

REACTIONS (1)
  - AGRANULOCYTOSIS [None]
